FAERS Safety Report 4619470-9 (Version None)
Quarter: 2005Q1

REPORT INFORMATION
  Report Type: 
  Country: None (occurrence: None)
  Receive Date: 20050325
  Receipt Date: 20050314
  Transmission Date: 20050727
  Serious: Yes (Other)
  Sender: FDA-Public Use
  Company Number: CN-JNJFOC-20050303545

PATIENT
  Age: 4 Year
  Sex: Male
  Weight: 17 kg

DRUGS (6)
  1. TOPAMAX [Suspect]
  2. TOPAMAX [Suspect]
  3. TOPAMAX [Suspect]
  4. TOPAMAX [Suspect]
  5. TOPAMAX [Suspect]
     Indication: CONVULSION
  6. VALPROATE SODIUM [Concomitant]

REACTIONS (1)
  - DEMENTIA [None]
